FAERS Safety Report 17857076 (Version 3)
Quarter: 2020Q3

REPORT INFORMATION
  Report Type: Report from Study
  Country: US (occurrence: US)
  Receive Date: 20200603
  Receipt Date: 20200813
  Transmission Date: 20201103
  Serious: Yes (Hospitalization)
  Sender: FDA-Public Use
  Company Number: US-ACTELION-A-NJ2020-205748

PATIENT
  Sex: Female
  Weight: 102.04 kg

DRUGS (4)
  1. ADEMPAS [Concomitant]
     Active Substance: RIOCIGUAT
  2. GABAPENTIN. [Concomitant]
     Active Substance: GABAPENTIN
     Dosage: UNK
  3. AMLODIPINE [Concomitant]
     Active Substance: AMLODIPINE BESYLATE
  4. OPSUMIT [Suspect]
     Active Substance: MACITENTAN
     Indication: PULMONARY HYPERTENSION
     Dosage: 10 MG, QD
     Route: 048

REACTIONS (7)
  - Condition aggravated [Unknown]
  - Nausea [Not Recovered/Not Resolved]
  - Body temperature increased [Unknown]
  - Motion sickness [Not Recovered/Not Resolved]
  - Impaired gastric emptying [Unknown]
  - Hospitalisation [Unknown]
  - White blood cell count increased [Unknown]
